FAERS Safety Report 7882098-1 (Version None)
Quarter: 2011Q4

REPORT INFORMATION
  Report Type: 
  Country: None (occurrence: None)
  Receive Date: 20111101
  Receipt Date: 20110609
  Transmission Date: 20120403
  Serious: No
  Sender: FDA-Public Use
  Company Number: US-AMGEN-USASP2011029782

PATIENT
  Sex: Female

DRUGS (2)
  1. ENBREL [Suspect]
     Indication: RHEUMATOID ARTHRITIS
     Dosage: 50 MG, QWK
     Dates: start: 20100725
  2. METHOTREXATE [Concomitant]
     Dates: start: 20090101

REACTIONS (3)
  - BLOOD GLUCOSE INCREASED [None]
  - JOINT EFFUSION [None]
  - RHEUMATOID ARTHRITIS [None]
